FAERS Safety Report 18322109 (Version 1)
Quarter: 2020Q3

REPORT INFORMATION
  Report Type: Spontaneous
  Country: JP (occurrence: JP)
  Receive Date: 20200928
  Receipt Date: 20200928
  Transmission Date: 20201103
  Serious: Yes (Other)
  Sender: FDA-Public Use
  Company Number: JP-FRESENIUS KABI-FK202009909

PATIENT
  Age: 36 Year
  Sex: Female

DRUGS (4)
  1. RITODRINE HYDROCHLORIDE [Concomitant]
     Active Substance: RITODRINE HYDROCHLORIDE
     Indication: TOCOLYSIS
     Route: 051
  2. ANESTHESIA [Concomitant]
     Active Substance: UNSPECIFIED INGREDIENT
     Indication: SPINAL ANAESTHESIA
     Route: 050
  3. MAGNESIUM SULFATE (MANUFACTURER UNKNOWN) [Suspect]
     Active Substance: MAGNESIUM SULFATE
     Dosage: LOADING DOSE
     Route: 042
  4. MAGNESIUM SULFATE (MANUFACTURER UNKNOWN) [Suspect]
     Active Substance: MAGNESIUM SULFATE
     Indication: TOCOLYSIS
     Dosage: INCREASED ON DAY 10 (DOSE FROM DAY 10 NOT SPECIFIED)
     Route: 042

REACTIONS (3)
  - Exposure during pregnancy [Recovered/Resolved]
  - Osmotic demyelination syndrome [Recovered/Resolved]
  - Hypermagnesaemia [Recovered/Resolved]
